FAERS Safety Report 11131187 (Version 1)
Quarter: 2015Q2

REPORT INFORMATION
  Report Type: Spontaneous
  Country: US (occurrence: US)
  Receive Date: 20150522
  Receipt Date: 20150522
  Transmission Date: 20150821
  Serious: Yes (Hospitalization)
  Sender: FDA-Public Use
  Company Number: US-BRISTOL-MYERS SQUIBB COMPANY-BMS-2015-030738

PATIENT
  Age: 62 Year
  Sex: Male

DRUGS (4)
  1. BACTRIM [Concomitant]
     Active Substance: SULFAMETHOXAZOLE\TRIMETHOPRIM
     Indication: PRODUCT USED FOR UNKNOWN INDICATION
     Route: 065
  2. OPDIVO [Suspect]
     Active Substance: NIVOLUMAB
     Indication: LUNG NEOPLASM MALIGNANT
     Route: 042
  3. LIPITOR [Concomitant]
     Active Substance: ATORVASTATIN CALCIUM
     Indication: PRODUCT USED FOR UNKNOWN INDICATION
     Route: 065
  4. VALTREX [Concomitant]
     Active Substance: VALACYCLOVIR HYDROCHLORIDE
     Indication: PRODUCT USED FOR UNKNOWN INDICATION
     Route: 065

REACTIONS (15)
  - Decreased appetite [Unknown]
  - Nausea [Unknown]
  - Dehydration [Unknown]
  - Pollakiuria [Unknown]
  - Muscular weakness [Unknown]
  - Hypotension [Unknown]
  - Musculoskeletal pain [Unknown]
  - Diarrhoea [Unknown]
  - Anaemia [Unknown]
  - Fatigue [Unknown]
  - Liver disorder [Unknown]
  - White blood cell count increased [Unknown]
  - Constipation [Unknown]
  - Pyrexia [Unknown]
  - Chromaturia [Unknown]
